FAERS Safety Report 10232683 (Version 2)
Quarter: 2014Q2

REPORT INFORMATION
  Report Type: Report from Study
  Country: CA (occurrence: CA)
  Receive Date: 20140612
  Receipt Date: 20140612
  Transmission Date: 20141212
  Serious: Yes (Death, Other)
  Sender: FDA-Public Use
  Company Number: PHHY2014CA017863

PATIENT
  Age: 67 Year
  Sex: Female

DRUGS (3)
  1. SANDOSTATIN LAR [Suspect]
     Indication: NEUROENDOCRINE TUMOUR
     Dosage: 20 MG, ONCE/SINGLE
     Route: 030
     Dates: start: 20121129
  2. SANDOSTATIN LAR [Suspect]
     Dosage: 30 MG, EVERY 4 WEEKS
     Route: 030
     Dates: start: 20130322
  3. SANDOSTATIN LAR [Suspect]
     Dosage: 50 MG, QMO (EVERY 30 DAYS)
     Route: 030
     Dates: end: 20140603

REACTIONS (16)
  - Death [Fatal]
  - Malignant neoplasm progression [Unknown]
  - Diarrhoea [Recovering/Resolving]
  - Gastrointestinal disorder [Unknown]
  - Disorientation [Unknown]
  - Abasia [Recovered/Resolved]
  - Lethargy [Recovered/Resolved]
  - Hypotension [Unknown]
  - Oedema peripheral [Unknown]
  - Localised oedema [Unknown]
  - Gait disturbance [Unknown]
  - Abdominal pain upper [Unknown]
  - Pruritus generalised [Unknown]
  - Asthenia [Not Recovered/Not Resolved]
  - Fatigue [Unknown]
  - Decreased appetite [Unknown]
